FAERS Safety Report 24646828 (Version 1)
Quarter: 2024Q4

REPORT INFORMATION
  Report Type: Spontaneous
  Country: US (occurrence: None)
  Receive Date: 20241120
  Receipt Date: 20241120
  Transmission Date: 20250114
  Serious: No
  Sender: Public
  Company Number: None

PATIENT
  Age: 83 Year
  Sex: Female

DRUGS (1)
  1. POMALYST [Suspect]
     Active Substance: POMALIDOMIDE
     Indication: Meningioma
     Dosage: FREQUENCY : DAILY;?
     Route: 048
     Dates: start: 20210329, end: 20240830

REACTIONS (4)
  - Pain [None]
  - Pruritus [None]
  - Confusional state [None]
  - Therapy interrupted [None]

NARRATIVE: CASE EVENT DATE: 20240830
